FAERS Safety Report 14178161 (Version 2)
Quarter: 2017Q4

REPORT INFORMATION
  Report Type: Spontaneous
  Country: ES (occurrence: ES)
  Receive Date: 20171110
  Receipt Date: 20171113
  Transmission Date: 20180321
  Serious: Yes (Other)
  Sender: FDA-Public Use
  Company Number: ES-JNJFOC-20171103050

PATIENT
  Age: 34 Year
  Sex: Female
  Weight: 50.1 kg

DRUGS (2)
  1. LOMPER [Suspect]
     Active Substance: MEBENDAZOLE
     Indication: ENTEROBIASIS
     Route: 048
     Dates: start: 20170713, end: 20171021
  2. NATIFAR [Concomitant]
     Route: 065
     Dates: start: 2017, end: 20171021

REACTIONS (2)
  - Exposure during pregnancy [Recovered/Resolved]
  - Abortion spontaneous [Recovered/Resolved]

NARRATIVE: CASE EVENT DATE: 20170713
